FAERS Safety Report 25761119 (Version 2)
Quarter: 2025Q3

REPORT INFORMATION
  Report Type: Spontaneous
  Country: JP (occurrence: JP)
  Receive Date: 20250904
  Receipt Date: 20250916
  Transmission Date: 20251020
  Serious: Yes (Death, Other)
  Sender: NOVO NORDISK
  Company Number: JP-NOVOPROD-1509421

PATIENT
  Age: 7 Decade
  Sex: Male
  Weight: 42.8 kg

DRUGS (2)
  1. NOVOSEVEN [Suspect]
     Active Substance: COAGULATION FACTOR VIIA RECOMBINANT HUMAN
     Indication: Acquired haemophilia
     Dosage: 15 MG, QD
     Route: 042
     Dates: start: 20250822, end: 20250822
  2. TRANSAMIN [Concomitant]
     Active Substance: TRANEXAMIC ACID
     Indication: Acquired haemophilia
     Dosage: 1000 MG, QD
     Route: 042
     Dates: start: 20250822, end: 20250822

REACTIONS (2)
  - Therapeutic response decreased [Unknown]
  - Haemorrhage [Fatal]

NARRATIVE: CASE EVENT DATE: 20250801
